FAERS Safety Report 4431093-3 (Version None)
Quarter: 2004Q3

REPORT INFORMATION
  Report Type: 
  Country: None (occurrence: None)
  Receive Date: 20040820
  Receipt Date: 20040820
  Transmission Date: 20050211
  Serious: Yes (Other)
  Sender: FDA-Public Use
  Company Number: None

PATIENT
  Sex: Female
  Weight: 52.3905 kg

DRUGS (3)
  1. OXYCONTIN [Suspect]
     Indication: FACIAL PAIN
     Dosage: 80 MG PO TID; 60 MG PO @ HS
     Route: 048
  2. OXYCONTIN [Suspect]
     Indication: SINUS PAIN
     Dosage: 80 MG PO TID; 60 MG PO @ HS
     Route: 048
  3. .. [Concomitant]

REACTIONS (9)
  - ANXIETY [None]
  - DEPRESSION [None]
  - DYSPNOEA [None]
  - HEADACHE [None]
  - INSOMNIA [None]
  - MALAISE [None]
  - NAUSEA [None]
  - PHARMACEUTICAL PRODUCT COMPLAINT [None]
  - WEIGHT DECREASED [None]
